FAERS Safety Report 9415405 (Version 1)
Quarter: 2013Q3

REPORT INFORMATION
  Report Type: Spontaneous
  Country: US (occurrence: US)
  Receive Date: 20130723
  Receipt Date: 20130723
  Transmission Date: 20140515
  Serious: No
  Sender: FDA-Public Use
  Company Number: US-BAYER-2013-088301

PATIENT
  Age: 82 Year
  Sex: Female
  Weight: 97.51 kg

DRUGS (3)
  1. VANQUISH [Suspect]
     Indication: ARTHRITIS
     Dosage: 2 DF, QD
     Route: 048
     Dates: start: 1974
  2. VANQUISH [Suspect]
     Indication: ARTHRITIS
     Dosage: 5 DF, UNK
     Route: 048
  3. ALEVE CAPLET [Suspect]
     Route: 048

REACTIONS (3)
  - Extra dose administered [None]
  - Incorrect drug administration duration [None]
  - Drug ineffective [None]
